FAERS Safety Report 7992360-X (Version None)
Quarter: 2011Q4

REPORT INFORMATION
  Report Type: 
  Country: None (occurrence: None)
  Receive Date: 20111219
  Receipt Date: 20101221
  Transmission Date: 20120403
  Serious: No
  Sender: FDA-Public Use
  Company Number: US-ASTRAZENECA-2010SE60207

PATIENT
  Age: 75 Year
  Sex: Female

DRUGS (4)
  1. BAYCOL [Suspect]
     Indication: HYPERCHOLESTEROLAEMIA
     Route: 065
  2. CRESTOR [Suspect]
     Indication: HYPERCHOLESTEROLAEMIA
     Route: 048
     Dates: start: 20100701, end: 20101101
  3. LIPITOR [Suspect]
     Indication: HYPERCHOLESTEROLAEMIA
     Route: 065
  4. WELCHOL [Suspect]
     Route: 065

REACTIONS (5)
  - ASTHENIA [None]
  - ABDOMINAL PAIN [None]
  - MUSCLE SPASMS [None]
  - BLOOD TRIGLYCERIDES INCREASED [None]
  - MYALGIA [None]
